FAERS Safety Report 20690546 (Version 1)
Quarter: 2022Q2

REPORT INFORMATION
  Report Type: Spontaneous
  Country: US (occurrence: None)
  Receive Date: 20220406
  Receipt Date: 20220406
  Transmission Date: 20220721
  Serious: Yes (Hospitalization)
  Sender: FDA-Public Use
  Company Number: None

PATIENT
  Age: 54 Year
  Sex: Female
  Weight: 85.7 kg

DRUGS (10)
  1. HUMIRA [Suspect]
     Active Substance: ADALIMUMAB
     Dosage: 40MG Q2 WEEKS (LAST INJECTION 20JAN2020)?
     Route: 058
     Dates: end: 20200120
  2. LIALDA [Suspect]
     Active Substance: MESALAMINE
     Dosage: 1.2 G - 2 TABLETS QE?
  3. DICYCLOMINE [Suspect]
     Active Substance: DICYCLOMINE HYDROCHLORIDE
     Dosage: 10MG  QID ?
  4. SUMATRIPTAN [Suspect]
     Active Substance: SUMATRIPTAN
     Dosage: 100MG PRN
  5. VENTOLIN HFA [Suspect]
     Active Substance: ALBUTEROL SULFATE
     Dosage: (VENTOLIN HFA 90 MCG/INH INHALATION) 2 PUFFS Q 6 HRS?
     Route: 055
  6. ELAVIL [Suspect]
     Active Substance: AMITRIPTYLINE HYDROCHLORIDE
     Dosage: 150 MG QD?
  7. CLONAZEPAM [Suspect]
     Active Substance: CLONAZEPAM
     Dosage: 1 MG QD
  8. LEVETIRACETAM [Suspect]
     Active Substance: LEVETIRACETAM
     Dosage: 500 MG BID
  9. LEVOTHYROXINE [Suspect]
     Active Substance: LEVOTHYROXINE
     Dosage: 175 MCG QD
  10. MORPHINE [Suspect]
     Active Substance: MORPHINE
     Dosage: 15 MG Q 12 HRS
     Route: 005

REACTIONS (8)
  - Abdominal pain [None]
  - Nausea [None]
  - Vomiting [None]
  - Diarrhoea [None]
  - Cholelithiasis [None]
  - Cholangitis [None]
  - Pancreatitis [None]
  - Sphincter of Oddi dysfunction [None]

NARRATIVE: CASE EVENT DATE: 20200124
